FAERS Safety Report 6275910-3 (Version None)
Quarter: 2009Q3

REPORT INFORMATION
  Report Type: 
  Country: None (occurrence: None)
  Receive Date: 20090720
  Receipt Date: 20090709
  Transmission Date: 20100115
  Serious: Yes (Hospitalization)
  Sender: FDA-Public Use
  Company Number: 8048966

PATIENT
  Age: 28 Year
  Sex: Female

DRUGS (11)
  1. CIMZIA [Suspect]
     Indication: CROHN'S DISEASE
     Dosage: 400 MG, SC
     Route: 058
     Dates: start: 20090521
  2. BACTRIM [Concomitant]
  3. CYMBALTA [Concomitant]
  4. CALCIUM [Concomitant]
  5. CENTRUM [Concomitant]
  6. WELCHOL [Concomitant]
  7. ELAVIL [Concomitant]
  8. CELEBREX [Concomitant]
  9. AMBIEN [Concomitant]
  10. BIRTH CONTROL [Concomitant]
  11. BENTYL [Concomitant]

REACTIONS (4)
  - GASTROINTESTINAL DISORDER [None]
  - HERPES ZOSTER [None]
  - INFECTIOUS MONONUCLEOSIS [None]
  - INFLUENZA [None]
